FAERS Safety Report 9034497 (Version 2)
Quarter: 2013Q2

REPORT INFORMATION
  Report Type: Spontaneous
  Country: US (occurrence: US)
  Receive Date: 20130129
  Receipt Date: 20130422
  Transmission Date: 20140414
  Serious: Yes (Life-Threatening, Hospitalization, Other)
  Sender: FDA-Public Use
  Company Number: US-AMGEN-USASP2013004673

PATIENT
  Age: 78 Year
  Sex: Female
  Weight: 49.89 kg

DRUGS (26)
  1. PROCRIT [Suspect]
     Indication: MYELODYSPLASTIC SYNDROME
     Dosage: 40000 UNIT, 2 TIMES/WK
     Route: 058
     Dates: start: 201211
  2. TYLENOL /00020001/ [Suspect]
     Dosage: UNK
  3. LEVOTHYROXINE [Concomitant]
     Dosage: 0.88MCG ALTERNATING WITH 0. 100 MCG
  4. LEVOTHYROXINE [Concomitant]
     Dosage: 100 MG/ 88 MG 1 QD ALTERNATING DAYS
  5. AMLODIPINE [Concomitant]
     Dosage: 10 MG, QD
  6. POTASSIUM [Concomitant]
     Dosage: 20 MEQ, QD
  7. CYCLOBENZAPRINE [Concomitant]
     Indication: MUSCLE RELAXANT THERAPY
     Dosage: 10 MG, 1 TID AS NEEDED
  8. VICODIN [Concomitant]
     Indication: PAIN
     Dosage: UNK 1Q6H AS NEEDED
  9. FLORASTOR [Concomitant]
     Dosage: UNK UNK,1 BID
  10. CALCIUM CITRATE [Concomitant]
     Dosage: 600 MG, 3QD
  11. MAGNESIUM CITRATE [Concomitant]
     Indication: MUSCLE SPASMS
     Dosage: 500 MG, UNK 2HS
  12. OMEPRAZOLE [Concomitant]
     Dosage: 20 MG, UNK 1QD
  13. CLA [Concomitant]
     Indication: MUSCLE SPASMS
     Dosage: UNK 6 QD
  14. COQ10                              /00517201/ [Concomitant]
     Dosage: 200 MG, 1 QD
  15. CHROMIUM PICOLINATE [Concomitant]
     Dosage: 200 MG, UNK 1QD
  16. VITAMIN D3 [Concomitant]
     Dosage: 5000 UNK, 1 QD
  17. TURMERIC                           /01079602/ [Concomitant]
     Dosage: UNK 2QD
  18. 5-HTP                              /00439301/ [Concomitant]
     Dosage: 100 MG, UNK 1QD
  19. BENADRYL                           /00000402/ [Concomitant]
     Indication: PRURITUS
     Dosage: 25 MG, UNK
  20. ZYRTEC [Concomitant]
     Indication: HYPERSENSITIVITY
     Dosage: 10 MG, QD
  21. MAXALT                             /01406501/ [Concomitant]
     Indication: MIGRAINE
     Dosage: UNK
  22. IMODIUM [Concomitant]
     Dosage: UNK PRN
  23. VALTREX [Concomitant]
     Indication: HERPES ZOSTER
     Dosage: PRN
  24. DOSS [Concomitant]
     Dosage: 250 MG, BID
  25. ZIRGAN [Concomitant]
     Dosage: UNK
  26. ASA [Concomitant]
     Dosage: 325 MG, UNK 1PRN

REACTIONS (11)
  - Haemoglobin decreased [Unknown]
  - Gastrointestinal haemorrhage [Recovered/Resolved]
  - Gastrooesophageal reflux disease [Unknown]
  - Hiatus hernia [Unknown]
  - Oesophageal ulcer [Unknown]
  - Increased appetite [Unknown]
  - Contusion [Not Recovered/Not Resolved]
  - Injection site bruising [Unknown]
  - Injection site haemorrhage [Unknown]
  - Malaise [Unknown]
  - Skin disorder [Unknown]
